FAERS Safety Report 10644892 (Version 4)
Quarter: 2015Q2

REPORT INFORMATION
  Report Type: Report from Study
  Country: US (occurrence: US)
  Receive Date: 20141211
  Receipt Date: 20150608
  Transmission Date: 20150821
  Serious: Yes (Other)
  Sender: FDA-Public Use
  Company Number: US-009507513-1412USA005486

PATIENT

DRUGS (1)
  1. VORINOSTAT [Suspect]
     Active Substance: VORINOSTAT
     Indication: HODGKIN^S DISEASE
     Dosage: UNK, CYCLICAL
     Route: 048

REACTIONS (1)
  - Anaemia [Unknown]
